FAERS Safety Report 4643080-0 (Version None)
Quarter: 2005Q2

REPORT INFORMATION
  Report Type: 
  Country: None (occurrence: None)
  Receive Date: 20050421
  Receipt Date: 20050405
  Transmission Date: 20051028
  Serious: Yes (Other)
  Sender: FDA-Public Use
  Company Number: ACO_0141_2005

PATIENT
  Age: 53 Year
  Sex: Male

DRUGS (1)
  1. TERNELIN [Suspect]
     Dosage: DF

REACTIONS (2)
  - CHEST PAIN [None]
  - PERIPHERAL COLDNESS [None]
